FAERS Safety Report 5765358-X (Version None)
Quarter: 2008Q2

REPORT INFORMATION
  Report Type: 
  Country: None (occurrence: None)
  Receive Date: 20080609
  Receipt Date: 20080609
  Transmission Date: 20081010
  Serious: Yes (Other)
  Sender: FDA-Public Use
  Company Number: None

PATIENT
  Sex: Male
  Weight: 94.1 kg

DRUGS (2)
  1. GEMCITABINE [Suspect]
     Indication: PANCREATIC CARCINOMA
     Dosage: 800 MG/M2  D1, D8  IV
     Route: 042
     Dates: start: 20080522, end: 20080529
  2. CAPECITABINE [Suspect]
     Indication: PANCREATIC CARCINOMA
     Dosage: 500 MG/M2  D1 THROUGH D14 BID PO
     Route: 048
     Dates: start: 20080522, end: 20080605

REACTIONS (1)
  - PLATELET COUNT DECREASED [None]
